FAERS Safety Report 4426202-6 (Version None)
Quarter: 2004Q3

REPORT INFORMATION
  Report Type: 
  Country: None (occurrence: None)
  Receive Date: 20040811
  Receipt Date: 20040804
  Transmission Date: 20050211
  Serious: Yes (Other)
  Sender: FDA-Public Use
  Company Number: 2004224497US

PATIENT
  Age: 63 Year
  Sex: Male

DRUGS (1)
  1. CELEBREX [Suspect]
     Indication: ARTHRITIS
     Dosage: 1 DF, QD
     Dates: start: 19951207, end: 19971013

REACTIONS (2)
  - HEPATIC INFECTION [None]
  - HEPATOCELLULAR DAMAGE [None]
